FAERS Safety Report 5818093-3 (Version None)
Quarter: 2008Q3

REPORT INFORMATION
  Report Type: 
  Country: None (occurrence: None)
  Receive Date: 20080722
  Receipt Date: 20070906
  Transmission Date: 20090109
  Serious: No
  Sender: FDA-Public Use
  Company Number: US-BAYER-US-2007-033784

PATIENT
  Age: 59 Year
  Sex: Female
  Weight: 69 kg

DRUGS (1)
  1. MAGNEVIST [Suspect]
     Indication: NUCLEAR MAGNETIC RESONANCE IMAGING BRAIN
     Dosage: UNIT DOSE: 14 ML
     Route: 042
     Dates: start: 20070906, end: 20070906

REACTIONS (5)
  - FLUSHING [None]
  - NASAL DISCOMFORT [None]
  - PRODUCTIVE COUGH [None]
  - THROAT IRRITATION [None]
  - URTICARIA [None]
